FAERS Safety Report 4896919-8 (Version None)
Quarter: 2006Q1

REPORT INFORMATION
  Report Type: 
  Country: None (occurrence: None)
  Receive Date: 20060127
  Receipt Date: 20060119
  Transmission Date: 20060701
  Serious: Yes (Death, Hospitalization)
  Sender: FDA-Public Use
  Company Number: 2006005294

PATIENT
  Age: 64 Year
  Sex: Male
  Weight: 140 kg

DRUGS (2)
  1. LYRICA [Suspect]
     Indication: NEURALGIA
     Dosage: ORAL
     Route: 048
     Dates: start: 20051209, end: 20051214
  2. INSULIN [Concomitant]

REACTIONS (7)
  - ACIDOSIS [None]
  - BLOOD CREATINE PHOSPHOKINASE INCREASED [None]
  - BLOOD PRESSURE ABNORMAL [None]
  - CARDIAC DISORDER [None]
  - ENDOCRINE DISORDER [None]
  - FALL [None]
  - SOMNOLENCE [None]
